FAERS Safety Report 19380389 (Version 4)
Quarter: 2021Q2

REPORT INFORMATION
  Report Type: Report from Study
  Country: KR (occurrence: KR)
  Receive Date: 20210607
  Receipt Date: 20210621
  Transmission Date: 20210717
  Serious: Yes (Hospitalization)
  Sender: FDA-Public Use
  Company Number: KR-CELLTRION INC.-2021KR006880

PATIENT

DRUGS (22)
  1. ESO DUO [Concomitant]
     Indication: GASTRITIS PROPHYLAXIS
     Dosage: 20/800 MG, PRN
     Route: 048
     Dates: start: 20210511
  2. LIDOCAINE VISCOUS [Concomitant]
     Active Substance: LIDOCAINE HYDROCHLORIDE
     Indication: PREMEDICATION
     Dosage: 15 ML, ONCE
     Route: 048
     Dates: start: 20200903, end: 20200903
  3. BROPIUM [Concomitant]
     Indication: PREMEDICATION
     Dosage: 5 ML, ONCE
     Route: 042
     Dates: start: 20200903, end: 20200903
  4. LOPERAMIDE [LOPERAMIDE HYDROCHLORIDE] [Concomitant]
     Active Substance: LOPERAMIDE HYDROCHLORIDE
     Indication: DIARRHOEA
     Dosage: 2 MG, PRN
     Route: 048
     Dates: start: 20200915
  5. SMOFLIPID [Concomitant]
     Active Substance: FISH OIL\MEDIUM-CHAIN TRIGLYCERIDES\OLIVE OIL\SOYBEAN OIL
     Indication: DECREASED APPETITE
  6. GASMOTIN [Concomitant]
     Active Substance: MOSAPRIDE CITRATE
     Indication: DYSPEPSIA
     Dosage: 15 MG, QD
     Route: 048
     Dates: start: 20210309
  7. NESP [Concomitant]
     Active Substance: DARBEPOETIN ALFA
     Indication: ANAEMIA
     Dosage: 120 MICROGRAM, PRN (PREFILLED SYRINGE)
     Route: 058
  8. HERZUMA [Suspect]
     Active Substance: TRASTUZUMAB-PKRB
     Indication: HER2 POSITIVE GASTRIC CANCER
     Dosage: 120 MG (2MG/KG), WEEKLY
     Route: 042
  9. DEXAMETHASONE. [Concomitant]
     Active Substance: DEXAMETHASONE
     Indication: PREMEDICATION
     Dosage: 5 MG, PRN
     Route: 042
     Dates: start: 20200915
  10. SMECTA [Concomitant]
     Active Substance: MONTMORILLONITE
     Indication: DIARRHOEA
     Dosage: 20 MG, PRN
     Route: 048
     Dates: start: 20200915
  11. SMOFLIPID [Concomitant]
     Active Substance: FISH OIL\MEDIUM-CHAIN TRIGLYCERIDES\OLIVE OIL\SOYBEAN OIL
     Indication: PROPHYLAXIS
     Dosage: 100 MG, PRN
     Route: 042
     Dates: start: 20200915
  12. NEUTROGIN [Concomitant]
     Active Substance: LENOGRASTIM
     Indication: ANAEMIA
     Dosage: 150 MICROGRAM, ONCE
     Dates: start: 20210519, end: 20210519
  13. PARIET [Concomitant]
     Active Substance: RABEPRAZOLE SODIUM
     Indication: DYSPEPSIA
     Dosage: 10 MG, QD
     Route: 048
     Dates: start: 20210309
  14. SANDOSTATIN [Concomitant]
     Active Substance: OCTREOTIDE ACETATE
     Indication: COLITIS
     Dosage: 0.2 MG, 2 TIMES PER DAY
     Route: 058
     Dates: start: 20210518, end: 20210518
  15. TRISONKIT [Concomitant]
     Indication: COLITIS
     Dosage: 2 G, EVERY DAY
     Route: 042
     Dates: start: 20210519, end: 20210521
  16. FERRITOP [Concomitant]
     Indication: ANAEMIA
     Dosage: 355 MG, 2TIMES PER DAY
     Route: 048
     Dates: start: 20210525
  17. CEFTRIAXONE. [Concomitant]
     Active Substance: CEFTRIAXONE
     Indication: COLITIS
     Dosage: 2 G, ONCE
     Route: 042
     Dates: start: 20210518, end: 20210518
  18. HEXAMEDIN [Concomitant]
     Indication: MUCOSAL INFLAMMATION
     Dosage: 250 ML, ONCE
     Dates: start: 20210520, end: 20210520
  19. GASOCOL [Concomitant]
     Indication: PREMEDICATION
     Dosage: 10 ML, ONCE
     Route: 048
     Dates: start: 20200903, end: 20200903
  20. MECOOL [Concomitant]
     Indication: PREMEDICATION
     Dosage: 10 MG, PRN
     Route: 042
     Dates: start: 20200915
  21. PENIRAMIN [Concomitant]
     Indication: PREMEDICATION
     Dosage: 4 MG, PRN
     Route: 042
     Dates: start: 20200915
  22. TRIZEL [Concomitant]
     Indication: COLITIS
     Dosage: 1500 MG, 3 TIMES PER DAY
     Dates: start: 20210518, end: 20210521

REACTIONS (5)
  - Diarrhoea [Recovered/Resolved]
  - Obstruction gastric [Recovered/Resolved]
  - Feeding disorder [Unknown]
  - Off label use [Unknown]
  - Underdose [Unknown]

NARRATIVE: CASE EVENT DATE: 20210518
